FAERS Safety Report 9491390 (Version 2)
Quarter: 2013Q3

REPORT INFORMATION
  Report Type: Report from Study
  Country: NO (occurrence: NO)
  Receive Date: 20130830
  Receipt Date: 20130830
  Transmission Date: 20140515
  Serious: Yes (Hospitalization, Other)
  Sender: FDA-Public Use
  Company Number: PHHO2010NO13394

PATIENT
  Age: 83 Year
  Sex: Male
  Weight: 110 kg

DRUGS (1)
  1. ALISKIREN [Suspect]
     Indication: CARDIOVASCULAR DISORDER
     Dosage: UNK
     Route: 048
     Dates: start: 20080304, end: 20080829

REACTIONS (6)
  - Renal failure [Unknown]
  - Blood potassium increased [Unknown]
  - Concomitant disease progression [Recovered/Resolved]
  - Gangrene [Recovered/Resolved]
  - Skin ulcer [Recovered/Resolved]
  - Arteriosclerosis [Recovered/Resolved]
